FAERS Safety Report 4710180-6 (Version None)
Quarter: 2005Q3

REPORT INFORMATION
  Report Type: 
  Country: None (occurrence: None)
  Receive Date: 20050708
  Receipt Date: 20050708
  Transmission Date: 20060218
  Serious: Yes (Other)
  Sender: FDA-Public Use
  Company Number: None

PATIENT
  Age: 11 Year
  Sex: Male
  Weight: 39.4629 kg

DRUGS (2)
  1. ABILIFY [Suspect]
     Indication: AFFECTIVE DISORDER
     Dosage: 1/2 (5MG) QD X 1 WK THEN INCREASED TO 1 TAB QD
     Dates: start: 20050623, end: 20050706
  2. PEMOLINE [Concomitant]

REACTIONS (1)
  - RASH [None]
